FAERS Safety Report 15840251 (Version 1)
Quarter: 2019Q1

REPORT INFORMATION
  Report Type: Spontaneous
  Country: US (occurrence: US)
  Receive Date: 20190117
  Receipt Date: 20190117
  Transmission Date: 20190417
  Serious: Yes (Hospitalization)
  Sender: FDA-Public Use
  Company Number: US-AMGEN-USASP2019006398

PATIENT
  Age: 63 Year
  Sex: Female

DRUGS (3)
  1. ENBREL [Suspect]
     Active Substance: ETANERCEPT
     Indication: RHEUMATOID ARTHRITIS
     Dosage: 50 MG, QWK
     Route: 065
  2. ENBREL [Suspect]
     Active Substance: ETANERCEPT
     Dosage: 25 MG, 2 TIMES/WK
     Route: 065
  3. METHOTREXATE. [Suspect]
     Active Substance: METHOTREXATE
     Indication: PRODUCT USED FOR UNKNOWN INDICATION
     Route: 065

REACTIONS (18)
  - Muscle tightness [Unknown]
  - Hepatic enzyme increased [Unknown]
  - Sciatica [Unknown]
  - Injection site erythema [Unknown]
  - Hypoaesthesia [Recovering/Resolving]
  - Intentional product misuse [Unknown]
  - Sinusitis [Unknown]
  - Injection site reaction [Unknown]
  - Eye discharge [Not Recovered/Not Resolved]
  - Dry eye [Recovered/Resolved]
  - Back pain [Unknown]
  - Muscular weakness [Unknown]
  - Wrong technique in product usage process [Unknown]
  - Myalgia [Unknown]
  - Muscle spasms [Unknown]
  - Lumbar spinal stenosis [Unknown]
  - Injection site pruritus [Unknown]
  - Injection site urticaria [Unknown]

NARRATIVE: CASE EVENT DATE: 2018
